FAERS Safety Report 14379880 (Version 1)
Quarter: 2018Q1

REPORT INFORMATION
  Report Type: Spontaneous
  Country: US (occurrence: US)
  Receive Date: 20180112
  Receipt Date: 20180112
  Transmission Date: 20180509
  Serious: No
  Sender: FDA-Public Use
  Company Number: US-PFIZER INC-2018013774

PATIENT
  Age: 51 Year
  Sex: Female

DRUGS (1)
  1. LYRICA [Suspect]
     Active Substance: PREGABALIN
     Indication: OSTEOARTHRITIS
     Dosage: 200 MG, 2X/DAY
     Dates: start: 200701

REACTIONS (4)
  - Fibromyalgia [Unknown]
  - Product use in unapproved indication [Unknown]
  - Impaired work ability [Unknown]
  - Gait disturbance [Unknown]

NARRATIVE: CASE EVENT DATE: 200701
